FAERS Safety Report 9640337 (Version 4)
Quarter: 2014Q1

REPORT INFORMATION
  Report Type: Spontaneous
  Country: DE (occurrence: DE)
  Receive Date: 20131023
  Receipt Date: 20140210
  Transmission Date: 20141002
  Serious: Yes (Hospitalization, Other)
  Sender: FDA-Public Use
  Company Number: DE-UCBSA-101030

PATIENT
  Age: 47 Year
  Sex: Female
  Weight: 61 kg

DRUGS (22)
  1. VIMPAT [Suspect]
     Indication: EPILEPSY
     Dates: start: 201305, end: 201305
  2. VIMPAT [Suspect]
     Indication: EPILEPSY
     Route: 048
     Dates: start: 201305, end: 201310
  3. VIMPAT [Suspect]
     Indication: EPILEPSY
     Dosage: FREQUENCY: 2X
     Route: 048
     Dates: start: 201306, end: 2013
  4. VIMPAT [Suspect]
     Indication: EPILEPSY
     Dosage: IN THE TIMEFRAME OF 23-AUG-2013 TO 03-SEP-2013,50 MG,1-0-1-0
     Dates: start: 2013, end: 2013
  5. VIMPAT [Suspect]
     Indication: EPILEPSY
     Dosage: IN THE TIMEFRAME OF 23-AUG-2013 TO 03-SEP-2013,150MG,1-0-1-0
     Dates: start: 2013, end: 2013
  6. VIMPAT [Suspect]
     Indication: EPILEPSY
     Dosage: IN THE TIMEFRAME OF 23-SEP-2013 TO 02-OCT-2013,200 MG,1-0-1
     Dates: start: 2013, end: 201310
  7. LEVETIRACETAM [Concomitant]
     Indication: EPILEPSY
     Dosage: CHANGEOVER PERIOD; DOSE UNKNOWN
  8. LEVETIRACETAM [Concomitant]
     Indication: EPILEPSY
     Dosage: CHANGEOVER PERIOD; DOSE UNKNOWN
  9. ERGENYL CHRONO [Concomitant]
     Indication: EPILEPSY
     Route: 048
     Dates: end: 2013
  10. ERGENYL CHRONO [Concomitant]
     Indication: EPILEPSY
     Dosage: 300 MG, 2-0-2-0
     Dates: start: 2013
  11. EUTHYROX [Concomitant]
     Indication: HYPOTHYROIDISM
     Dosage: 1-0-0-0
     Route: 048
     Dates: start: 2013
  12. LAMOTRIGIN [Concomitant]
     Indication: EPILEPSY
     Dosage: CHNGEOVER PERIOD; DOSE UNKNOWN
  13. LAMOTRIGIN [Concomitant]
     Indication: EPILEPSY
     Dosage: CHNGEOVER PERIOD; DOSE UNKNOWN
  14. UNACID [Concomitant]
     Dosage: 3 G, 1-1-1
     Dates: start: 2013
  15. CEFTRIAXONE [Concomitant]
     Dosage: 2G
     Route: 042
     Dates: start: 2013
  16. CLARITHROMYCIN [Concomitant]
     Dosage: 250,2-0-2
     Dates: start: 2013
  17. ATROVENT +SALBUTAMOL [Concomitant]
     Route: 055
     Dates: start: 2013
  18. PARACODEINE [Concomitant]
     Indication: COUGH
     Dosage: 10?-10?-20?
     Dates: start: 2013
  19. PANTOZOL [Concomitant]
     Dosage: 1-0-0,40 MG
     Dates: start: 2013
  20. ZOPICLON [Concomitant]
     Dosage: 7.5 MG,0-0-1
     Dates: start: 2013
  21. BEPANTHEN [Concomitant]
     Dosage: 2-0-2
  22. MEROPENEM [Concomitant]
     Dosage: 3X DAILY

REACTIONS (6)
  - Interstitial lung disease [Recovering/Resolving]
  - Organising pneumonia [Not Recovered/Not Resolved]
  - Pneumonia [Recovering/Resolving]
  - Respiratory failure [Not Recovered/Not Resolved]
  - Gastritis [Unknown]
  - Feeling abnormal [Unknown]
